FAERS Safety Report 18186202 (Version 1)
Quarter: 2020Q3

REPORT INFORMATION
  Report Type: Spontaneous
  Country: US (occurrence: US)
  Receive Date: 20200822
  Receipt Date: 20200822
  Transmission Date: 20201103
  Serious: Yes (Disabling, Other)
  Sender: FDA-Public Use
  Company Number: None

PATIENT
  Age: 44 Year
  Sex: Female
  Weight: 47.25 kg

DRUGS (11)
  1. BOTOX [Suspect]
     Active Substance: ONABOTULINUMTOXINA
     Indication: SKIN WRINKLING
  2. CLONAZAPAM [Concomitant]
     Active Substance: CLONAZEPAM
  3. SUBOXIN [Concomitant]
  4. MAGNESIUM [Concomitant]
     Active Substance: MAGNESIUM
  5. VITAMIN C [Concomitant]
     Active Substance: ASCORBIC ACID
  6. GABAPENTIN. [Concomitant]
     Active Substance: GABAPENTIN
  7. NORTRIPTYLINE [Concomitant]
     Active Substance: NORTRIPTYLINE
  8. GABAPENTIN. [Concomitant]
     Active Substance: GABAPENTIN
  9. VITAMIN B [Concomitant]
     Active Substance: VITAMIN B
  10. COPPER [Concomitant]
     Active Substance: COPPER
  11. PROZASIN [Concomitant]

REACTIONS (12)
  - Trigeminal neuralgia [None]
  - Depression [None]
  - Irritable bowel syndrome [None]
  - Illness [None]
  - Nerve injury [None]
  - Alopecia [None]
  - Anxiety [None]
  - Skin burning sensation [None]
  - Muscle atrophy [None]
  - Cognitive disorder [None]
  - Dysphagia [None]
  - Insomnia [None]

NARRATIVE: CASE EVENT DATE: 20180301
